FAERS Safety Report 5847186-X (Version None)
Quarter: 2008Q3

REPORT INFORMATION
  Report Type: 
  Country: None (occurrence: None)
  Receive Date: 20080815
  Receipt Date: 20080808
  Transmission Date: 20090109
  Serious: Yes (Other)
  Sender: FDA-Public Use
  Company Number: PHHY2008JP17522

PATIENT
  Sex: Male

DRUGS (1)
  1. VOLTAREN [Suspect]
     Indication: PYREXIA
     Dosage: 25 MG, ONCE/SINGLE
     Route: 054

REACTIONS (3)
  - ASPARTATE AMINOTRANSFERASE INCREASED [None]
  - LIVER DISORDER [None]
  - RENAL DISORDER [None]
